FAERS Safety Report 6568758-3 (Version None)
Quarter: 2010Q1

REPORT INFORMATION
  Report Type: 
  Country: None (occurrence: None)
  Receive Date: 20100203
  Receipt Date: 20100125
  Transmission Date: 20100710
  Serious: Yes (Other)
  Sender: FDA-Public Use
  Company Number: CA-AMGEN-QUU388808

PATIENT
  Age: 67 Year
  Sex: Female
  Weight: 90.8 kg

DRUGS (2)
  1. ENBREL [Suspect]
     Indication: DRUG USE FOR UNKNOWN INDICATION
     Route: 030
  2. NAPROXEN [Concomitant]

REACTIONS (5)
  - ASTHENIA [None]
  - DEPRESSION [None]
  - INJECTION SITE REACTION [None]
  - RASH GENERALISED [None]
  - SICCA SYNDROME [None]
